FAERS Safety Report 12865358 (Version 4)
Quarter: 2020Q3

REPORT INFORMATION
  Report Type: Report from Study
  Country: PT (occurrence: PT)
  Receive Date: 20161020
  Receipt Date: 20161130
  Transmission Date: 20201105
  Serious: Yes (Death, Life-Threatening, Hospitalization, Other)
  Sender: FDA-Public Use
  Company Number: PT-JNJFOC-20161014251

PATIENT
  Age: 70 Year
  Sex: Male

DRUGS (2)
  1. DARATUMUMAB [Suspect]
     Active Substance: DARATUMUMAB
     Indication: PLASMA CELL MYELOMA
     Route: 042
     Dates: start: 20161006, end: 20161006
  2. DARATUMUMAB [Suspect]
     Active Substance: DARATUMUMAB
     Route: 042

REACTIONS (5)
  - Blood lactate dehydrogenase increased [Unknown]
  - Tumour lysis syndrome [Recovering/Resolving]
  - Intravascular haemolysis [Recovering/Resolving]
  - Haemodialysis [Unknown]
  - Septic shock [Fatal]

NARRATIVE: CASE EVENT DATE: 20161010
